FAERS Safety Report 6538546-2 (Version None)
Quarter: 2010Q1

REPORT INFORMATION
  Report Type: 
  Country: None (occurrence: None)
  Receive Date: 20100113
  Receipt Date: 20100113
  Transmission Date: 20100710
  Serious: Yes (Life-Threatening, Hospitalization)
  Sender: FDA-Public Use
  Company Number: None

PATIENT
  Sex: Female
  Weight: 69.5 kg

DRUGS (1)
  1. CLOZARIL [Suspect]
     Indication: DEMENTIA
     Dosage: 25 MG BID PO
     Route: 048
     Dates: start: 20091210

REACTIONS (9)
  - CARDIAC FAILURE [None]
  - CYTOTOXIC CARDIOMYOPATHY [None]
  - DIZZINESS [None]
  - DRUG EFFECT DECREASED [None]
  - DYSPNOEA [None]
  - FATIGUE [None]
  - OEDEMA PERIPHERAL [None]
  - ORTHOPNOEA [None]
  - WEIGHT INCREASED [None]
